FAERS Safety Report 17222911 (Version 2)
Quarter: 2025Q4

REPORT INFORMATION
  Report Type: Report from Study
  Country: CA (occurrence: CA)
  Receive Date: 20200102
  Receipt Date: 20251118
  Transmission Date: 20260118
  Serious: No
  Sender: ROCHE
  Company Number: CA-ROCHE-2506927

PATIENT
  Sex: Male

DRUGS (7)
  1. ACTEMRA [Suspect]
     Active Substance: TOCILIZUMAB
     Indication: Still^s disease
     Route: 058
     Dates: start: 20191121
  2. ACTEMRA [Suspect]
     Active Substance: TOCILIZUMAB
     Route: 058
  3. CALCIUM [Concomitant]
     Active Substance: CALCIUM
  4. ISONIAZID [Concomitant]
     Active Substance: ISONIAZID
  5. PREDNISONE [Concomitant]
     Active Substance: PREDNISONE
  6. TYLENOL [Concomitant]
     Active Substance: ACETAMINOPHEN
  7. ADVIL [Concomitant]
     Active Substance: IBUPROFEN

REACTIONS (1)
  - Eczema [Unknown]
